FAERS Safety Report 9498884 (Version 5)
Quarter: 2015Q1

REPORT INFORMATION
  Report Type: Report from Study
  Country: US (occurrence: US)
  Receive Date: 20130904
  Receipt Date: 20150210
  Transmission Date: 20150721
  Serious: Yes (Hospitalization, Other)
  Sender: FDA-Public Use
  Company Number: US-PURDUE-USA-2013-0105804

PATIENT
  Age: 68 Year
  Sex: Male

DRUGS (5)
  1. OXYCONTIN [Suspect]
     Active Substance: OXYCODONE HYDROCHLORIDE
     Indication: BACK PAIN
     Dosage: 80 MG, UNK
     Route: 048
     Dates: start: 2002
  2. OXYCONTIN [Suspect]
     Active Substance: OXYCODONE HYDROCHLORIDE
     Indication: ARTHRITIS
     Dosage: 60 MG, Q12H
     Route: 048
     Dates: start: 2012, end: 201401
  3. VALIUM [Concomitant]
     Active Substance: DIAZEPAM
     Indication: ANXIETY
     Dosage: UNK
     Route: 048
  4. OXYCONTIN [Suspect]
     Active Substance: OXYCODONE HYDROCHLORIDE
     Dosage: 80 MG, BID
     Route: 048
     Dates: end: 2012
  5. LORTAB [Concomitant]
     Active Substance: ACETAMINOPHEN\HYDROCODONE BITARTRATE
     Indication: BREAKTHROUGH PAIN
     Dosage: 10 MG, TID
     Route: 048

REACTIONS (25)
  - Drug withdrawal syndrome [Not Recovered/Not Resolved]
  - Feeding disorder [Unknown]
  - Road traffic accident [Unknown]
  - Joint injury [Unknown]
  - Tooth disorder [Unknown]
  - Pain [Not Recovered/Not Resolved]
  - Tooth loss [Unknown]
  - Throat cancer [Unknown]
  - Memory impairment [Unknown]
  - Anxiety [Unknown]
  - Upper limb fracture [Unknown]
  - Weight decreased [Not Recovered/Not Resolved]
  - Pruritus [Unknown]
  - Hypoaesthesia [Unknown]
  - Neoplasm malignant [Unknown]
  - Fall [Unknown]
  - Concussion [Unknown]
  - Oxygen supplementation [Unknown]
  - Mood swings [Unknown]
  - Vomiting [Not Recovered/Not Resolved]
  - Gait disturbance [Not Recovered/Not Resolved]
  - Malaise [Unknown]
  - Nausea [Not Recovered/Not Resolved]
  - Prostatic disorder [Unknown]
  - Headache [Unknown]

NARRATIVE: CASE EVENT DATE: 201308
